FAERS Safety Report 24527292 (Version 1)
Quarter: 2024Q4

REPORT INFORMATION
  Report Type: Report from Study
  Country: US (occurrence: US)
  Receive Date: 20241021
  Receipt Date: 20241021
  Transmission Date: 20250115
  Serious: No
  Sender: ROCHE
  Company Number: US-ROCHE-3559619

PATIENT
  Age: 70 Year
  Sex: Male

DRUGS (1)
  1. COTELLIC [Suspect]
     Active Substance: COBIMETINIB
     Indication: Thyroid cancer
     Dosage: DAILY 21 DAYS ON, 7 DAYS OFF/2 TABLETS
     Route: 048
     Dates: start: 20200813

REACTIONS (2)
  - Off label use [Unknown]
  - No adverse event [Unknown]
